FAERS Safety Report 5754914-0 (Version None)
Quarter: 2008Q2

REPORT INFORMATION
  Report Type: 
  Country: None (occurrence: None)
  Receive Date: 20080527
  Receipt Date: 20080506
  Transmission Date: 20081010
  Serious: Yes (Other)
  Sender: FDA-Public Use
  Company Number: 2008AL003687

PATIENT
  Sex: Male

DRUGS (5)
  1. DIGOXIN [Suspect]
     Dosage: 0.25MG DAILY PO
     Route: 048
  2. TRICOR [Concomitant]
  3. ATENOLOL [Concomitant]
  4. THYROID TAB [Concomitant]
  5. LISINOPRIL [Concomitant]

REACTIONS (1)
  - RENAL CANCER [None]
